FAERS Safety Report 10003526 (Version 3)
Quarter: 2014Q2

REPORT INFORMATION
  Report Type: Spontaneous
  Country: US (occurrence: US)
  Receive Date: 20140312
  Receipt Date: 20140611
  Transmission Date: 20141212
  Serious: No
  Sender: FDA-Public Use
  Company Number: US-INCYTE CORPORATION-2013IN002944

PATIENT
  Age: 71 Year
  Sex: Female

DRUGS (7)
  1. JAKAFI [Suspect]
     Indication: MYELOFIBROSIS
     Dosage: 15 MG, BID
     Route: 048
     Dates: start: 20131122
  2. JAKAFI [Suspect]
     Dosage: 15 MG, QD
     Route: 048
     Dates: end: 201403
  3. COZAAR/HCTZ [Concomitant]
  4. LAMICTAL [Concomitant]
  5. RANITIDINE [Concomitant]
  6. KLONOPIN [Concomitant]
  7. LOVENOX [Concomitant]

REACTIONS (15)
  - Dry mouth [Unknown]
  - Dry eye [Unknown]
  - Lip dry [Unknown]
  - Dry throat [Unknown]
  - Insomnia [Unknown]
  - Depressed mood [Unknown]
  - Odynophagia [Unknown]
  - Crying [Unknown]
  - Feeling abnormal [Unknown]
  - Oesophageal pain [Recovering/Resolving]
  - Oropharyngeal pain [Recovering/Resolving]
  - Nausea [Recovering/Resolving]
  - Abdominal distension [Recovering/Resolving]
  - Contusion [Unknown]
  - Blood count abnormal [Recovering/Resolving]
